FAERS Safety Report 6582190-8 (Version None)
Quarter: 2010Q1

REPORT INFORMATION
  Report Type: 
  Country: None (occurrence: None)
  Receive Date: 20100212
  Receipt Date: 20100212
  Transmission Date: 20100710
  Serious: Yes (Hospitalization)
  Sender: FDA-Public Use
  Company Number: None

PATIENT
  Sex: Male
  Weight: 87.73 kg

DRUGS (1)
  1. INTRON A [Suspect]
     Dosage: 820 MU

REACTIONS (4)
  - CARDIAC FAILURE CONGESTIVE [None]
  - FATIGUE [None]
  - HEPATIC ENZYME INCREASED [None]
  - PAROTITIS [None]
